FAERS Safety Report 20810137 (Version 2)
Quarter: 2022Q3

REPORT INFORMATION
  Report Type: Spontaneous
  Country: US (occurrence: US)
  Receive Date: 20220510
  Receipt Date: 20220726
  Transmission Date: 20221026
  Serious: No
  Sender: FDA-Public Use
  Company Number: US-OYSTER POINT PHARMA, INC.-2022OYS00283

PATIENT
  Sex: Female
  Weight: 70.295 kg

DRUGS (3)
  1. TYRVAYA [Suspect]
     Active Substance: VARENICLINE TARTRATE
     Indication: Dry eye
     Dosage: 1 SPRAY, 2X/DAY
     Route: 045
     Dates: start: 20220210, end: 2022
  2. TYRVAYA [Suspect]
     Active Substance: VARENICLINE TARTRATE
     Dosage: 1 SPRAY, 2X/DAY
     Route: 045
     Dates: start: 20220210, end: 2022
  3. LUMIFY [Concomitant]
     Active Substance: BRIMONIDINE TARTRATE

REACTIONS (1)
  - Epistaxis [Recovered/Resolved]

NARRATIVE: CASE EVENT DATE: 20220101
